FAERS Safety Report 14294860 (Version 2)
Quarter: 2018Q1

REPORT INFORMATION
  Report Type: Spontaneous
  Country: JP (occurrence: JP)
  Receive Date: 20171218
  Receipt Date: 20180223
  Transmission Date: 20180509
  Serious: Yes (Other)
  Sender: FDA-Public Use
  Company Number: JP-ROCHE-2040131

PATIENT
  Age: 77 Year
  Sex: Female
  Weight: 38 kg

DRUGS (6)
  1. ACTEMRA [Suspect]
     Active Substance: TOCILIZUMAB
     Indication: RHEUMATOID ARTHRITIS
     Route: 058
     Dates: start: 20171115, end: 20171115
  2. TAKECAB [Concomitant]
     Active Substance: VONOPRAZAN FUMURATE
     Dosage: DOSAGE WAS UNCERTAIN.
     Route: 065
  3. VOLTAREN [Concomitant]
     Active Substance: DICLOFENAC SODIUM
     Dosage: DOSAGE WAS UNCERTAIN.
     Route: 065
  4. RHEUMATREX [Suspect]
     Active Substance: METHOTREXATE SODIUM
     Indication: PRODUCT USED FOR UNKNOWN INDICATION
     Route: 048
     Dates: end: 20171123
  5. PREDNISOLONE. [Concomitant]
     Active Substance: PREDNISOLONE
     Dosage: DOSAGE WAS UNCERTAIN.
     Route: 065
  6. LYRICA [Concomitant]
     Active Substance: PREGABALIN
     Dosage: DOSAGE WAS UNCERTAIN.
     Route: 065

REACTIONS (13)
  - Dyspnoea exertional [Unknown]
  - Fatigue [Unknown]
  - Hypoxia [Unknown]
  - Interstitial lung disease [Recovering/Resolving]
  - Malaise [Unknown]
  - Pyrexia [Unknown]
  - Pulmonary artery wall hypertrophy [Unknown]
  - Bronchiectasis [Unknown]
  - Pneumocystis jirovecii pneumonia [Unknown]
  - Cough [Unknown]
  - Cyst [Unknown]
  - Pneumocystis test positive [Unknown]
  - Productive cough [Unknown]

NARRATIVE: CASE EVENT DATE: 20171126
